FAERS Safety Report 4678607-6 (Version None)
Quarter: 2005Q2

REPORT INFORMATION
  Report Type: 
  Country: None (occurrence: None)
  Receive Date: 20050531
  Receipt Date: 20050531
  Transmission Date: 20051028
  Serious: No
  Sender: FDA-Public Use
  Company Number: None

PATIENT
  Sex: Female

DRUGS (2)
  1. DURAGESIC-75 [Suspect]
     Indication: SPINAL OSTEOARTHRITIS
     Dosage: APPLY 1 PATCH EVERY 3RD DAY
     Route: 062
  2. DURAGESIC-75 [Suspect]
     Indication: SYSTEMIC LUPUS ERYTHEMATOSUS
     Dosage: APPLY 1 PATCH EVERY 3RD DAY
     Route: 062

REACTIONS (2)
  - DRUG INEFFECTIVE [None]
  - THERAPEUTIC RESPONSE UNEXPECTED WITH DRUG SUBSTITUTION [None]
